FAERS Safety Report 9230492 (Version 2)
Quarter: 2013Q2

REPORT INFORMATION
  Report Type: Spontaneous
  Country: DE (occurrence: DE)
  Receive Date: 20130415
  Receipt Date: 20130501
  Transmission Date: 20140414
  Serious: Yes (Hospitalization)
  Sender: FDA-Public Use
  Company Number: DE-JNJFOC-20130316157

PATIENT
  Age: 73 Year
  Sex: Male
  Weight: 74.83 kg

DRUGS (2)
  1. XARELTO [Suspect]
     Indication: CEREBROVASCULAR ACCIDENT PROPHYLAXIS
     Route: 048
     Dates: end: 20130225
  2. XARELTO [Suspect]
     Indication: ATRIAL FIBRILLATION
     Route: 048
     Dates: end: 20130225

REACTIONS (3)
  - Pulmonary haemorrhage [Recovered/Resolved]
  - Respiratory failure [Recovered/Resolved]
  - Lung consolidation [Recovered/Resolved]
